FAERS Safety Report 8410999-4 (Version None)
Quarter: 2012Q2

REPORT INFORMATION
  Report Type: 
  Country: None (occurrence: None)
  Receive Date: 20120605
  Receipt Date: 20120525
  Transmission Date: 20120825
  Serious: Yes (Hospitalization)
  Sender: FDA-Public Use
  Company Number: GB-SANOFI-AVENTIS-2012SA001170

PATIENT
  Age: 73 Year
  Sex: Male
  Weight: 77.8 kg

DRUGS (6)
  1. PREDNISOLONE [Suspect]
     Indication: PROSTATE CANCER
     Route: 048
     Dates: start: 20110830
  2. ASPIRIN [Concomitant]
     Route: 048
  3. ROSUVASTATIN [Concomitant]
     Route: 048
  4. WARFARIN [Concomitant]
     Route: 048
  5. CABAZITAXEL [Suspect]
     Indication: PROSTATE CANCER
     Route: 042
     Dates: start: 20110830, end: 20110830
  6. CABAZITAXEL [Suspect]
     Route: 042
     Dates: start: 20111216, end: 20111216

REACTIONS (1)
  - GASTROINTESTINAL HAEMORRHAGE [None]
